FAERS Safety Report 17284990 (Version 1)
Quarter: 2020Q1

REPORT INFORMATION
  Report Type: Spontaneous
  Country: ZA (occurrence: ZA)
  Receive Date: 20200117
  Receipt Date: 20200117
  Transmission Date: 20200409
  Serious: Yes (Other)
  Sender: FDA-Public Use
  Company Number: ZA-JACOBUS PHARMACEUTICAL COMPANY, INC.-2079147

PATIENT
  Age: 29 Year
  Sex: Male

DRUGS (6)
  1. PASER [Suspect]
     Active Substance: AMINOSALICYLIC ACID
     Indication: TUBERCULOSIS
     Dates: start: 20170707
  2. BEDAQUILINE 200 MG [Suspect]
     Active Substance: BEDAQUILINE
     Dates: start: 20180504
  3. DELAMANID TABLET [Suspect]
     Active Substance: DELAMANID
     Dates: start: 20180807
  4. LINEZOLID. [Suspect]
     Active Substance: LINEZOLID
  5. CAPREOMYCIN [Suspect]
     Active Substance: CAPREOMYCIN
     Route: 030
     Dates: start: 20180504, end: 20180831
  6. PYRAZINAMIDE. [Suspect]
     Active Substance: PYRAZINAMIDE
     Dates: start: 20170707

REACTIONS (1)
  - Ototoxicity [None]
